FAERS Safety Report 19830596 (Version 1)
Quarter: 2021Q3

REPORT INFORMATION
  Report Type: Spontaneous
  Country: US (occurrence: US)
  Receive Date: 20210914
  Receipt Date: 20210914
  Transmission Date: 20211014
  Serious: Yes (Death, Hospitalization)
  Sender: FDA-Public Use
  Company Number: None

PATIENT
  Age: 77 Year
  Sex: Male
  Weight: 78.9 kg

DRUGS (3)
  1. PREDNISONE. [Suspect]
     Active Substance: PREDNISONE
     Dates: start: 20190610, end: 20200123
  2. ABIRATERONE ACETATE. [Suspect]
     Active Substance: ABIRATERONE ACETATE
     Dates: start: 20190610, end: 20200123
  3. CABAZITAXEL [Suspect]
     Active Substance: CABAZITAXEL
     Dates: start: 20190610, end: 20190923

REACTIONS (8)
  - Malnutrition [None]
  - Disease progression [None]
  - Anaemia of chronic disease [None]
  - Lactic acidosis [None]
  - Dehydration [None]
  - Acute kidney injury [None]
  - Asthenia [None]
  - Pulmonary embolism [None]

NARRATIVE: CASE EVENT DATE: 20200210
